FAERS Safety Report 11993553 (Version 5)
Quarter: 2021Q4

REPORT INFORMATION
  Report Type: Spontaneous
  Country: US (occurrence: US)
  Receive Date: 20160203
  Receipt Date: 20211026
  Transmission Date: 20220303
  Serious: Yes (Hospitalization)
  Sender: FDA-Public Use
  Company Number: US-PFIZER INC-2016026169

PATIENT
  Age: 79 Year
  Sex: Female

DRUGS (3)
  1. CALAN SR [Suspect]
     Active Substance: VERAPAMIL HYDROCHLORIDE
     Indication: Hypertension
     Dosage: UNK
     Dates: start: 1981
  2. CALAN SR [Suspect]
     Active Substance: VERAPAMIL HYDROCHLORIDE
     Indication: Cerebrovascular accident
     Dosage: 240 MG, 1X/DAY (AT NIGHT)
  3. CALAN SR [Suspect]
     Active Substance: VERAPAMIL HYDROCHLORIDE
     Indication: Atrial fibrillation

REACTIONS (4)
  - Lower limb fracture [Unknown]
  - Hypotension [Unknown]
  - Poor quality product administered [Unknown]
  - Product colour issue [Unknown]

NARRATIVE: CASE EVENT DATE: 20160101
